FAERS Safety Report 11687565 (Version 2)
Quarter: 2015Q4

REPORT INFORMATION
  Report Type: Spontaneous
  Country: FR (occurrence: FR)
  Receive Date: 20151030
  Receipt Date: 20151215
  Transmission Date: 20160304
  Serious: Yes (Death)
  Sender: FDA-Public Use
  Company Number: FR-BAYER-2015-450720

PATIENT
  Age: 41 Year
  Sex: Female

DRUGS (6)
  1. OXYCONTIN [Concomitant]
     Active Substance: OXYCODONE HYDROCHLORIDE
     Indication: PROCTALGIA
     Dosage: 100 MG, BID
     Route: 048
     Dates: start: 201507
  2. LYRICA [Concomitant]
     Active Substance: PREGABALIN
     Indication: PROCTALGIA
     Dosage: 25 MG, QID
     Route: 048
     Dates: start: 201507
  3. STIVARGA [Suspect]
     Active Substance: REGORAFENIB
     Indication: COLORECTAL CANCER
     Dosage: 2 DF, BID
     Route: 048
     Dates: start: 20150727, end: 20150816
  4. LASILIX [Concomitant]
     Active Substance: FUROSEMIDE
     Dosage: 20 MG, QD
     Route: 048
  5. OXYNORM [Concomitant]
     Active Substance: OXYCODONE HYDROCHLORIDE
     Indication: PROCTALGIA
     Dosage: 30 MG, 6ID
     Route: 048
     Dates: start: 201507
  6. ALPRAZOLAM. [Concomitant]
     Active Substance: ALPRAZOLAM
     Indication: ANXIETY
     Dosage: 25 MG, TID

REACTIONS (6)
  - Blood bilirubin increased [Fatal]
  - Anaemia [Fatal]
  - Hepatic failure [Fatal]
  - Transaminases increased [Fatal]
  - Fatigue [Fatal]
  - Oedema peripheral [Fatal]

NARRATIVE: CASE EVENT DATE: 20150818
